FAERS Safety Report 10219379 (Version 1)
Quarter: 2014Q2

REPORT INFORMATION
  Report Type: Spontaneous
  Country: RU (occurrence: RU)
  Receive Date: 20140605
  Receipt Date: 20140605
  Transmission Date: 20141212
  Serious: Yes (Death)
  Sender: FDA-Public Use
  Company Number: RU-ACTELION-A-CH2014-099501

PATIENT
  Age: 48 Year
  Sex: Male
  Weight: 75 kg

DRUGS (6)
  1. TRACLEER [Suspect]
     Indication: PULMONARY ARTERIAL HYPERTENSION
     Dosage: 125 MG, BID
     Route: 048
     Dates: start: 20130401, end: 20140523
  2. TRACLEER [Suspect]
     Dosage: 62.5 MG, BID
     Route: 048
     Dates: start: 20130201, end: 20130331
  3. REVATIO [Concomitant]
     Dosage: UNK
     Dates: start: 20130201, end: 20140523
  4. VENTAVIS BAYER SCHERING [Concomitant]
     Indication: PULMONARY ARTERIAL HYPERTENSION
     Dosage: UNK
     Dates: start: 20130201, end: 20140523
  5. DIUVER [Concomitant]
     Dosage: UNK
     Dates: start: 20140201, end: 20140523
  6. VEROSPIRONE [Concomitant]
     Dosage: UNK
     Dates: start: 20130201, end: 20140523

REACTIONS (1)
  - Cardiac failure acute [Fatal]
